FAERS Safety Report 18003868 (Version 1)
Quarter: 2020Q3

REPORT INFORMATION
  Report Type: Spontaneous
  Country: US (occurrence: US)
  Receive Date: 20200709
  Receipt Date: 20200709
  Transmission Date: 20201103
  Serious: No
  Sender: FDA-Public Use
  Company Number: US-ASTELLAS-2019US050059

PATIENT
  Age: 70 Year
  Sex: Female

DRUGS (2)
  1. MYRBETRIQ [Suspect]
     Active Substance: MIRABEGRON
     Route: 065
  2. MYRBETRIQ [Suspect]
     Active Substance: MIRABEGRON
     Indication: URINARY INCONTINENCE
     Dosage: 100 MG, ONCE DAILY (2 TABLETS PER DAY FOR 2 WEEKS)
     Route: 065
     Dates: start: 2019

REACTIONS (4)
  - Poor quality product administered [Unknown]
  - Drug ineffective [Unknown]
  - Prescribed overdose [Unknown]
  - Product colour issue [Unknown]

NARRATIVE: CASE EVENT DATE: 2019
